FAERS Safety Report 8283888 (Version 72)
Quarter: 2019Q3

REPORT INFORMATION
  Report Type: Report from Study
  Country: CA (occurrence: CA)
  Receive Date: 20111212
  Receipt Date: 20190912
  Transmission Date: 20191005
  Serious: Yes (Hospitalization, Other)
  Sender: FDA-Public Use
  Company Number: PHHY2011CA64556

PATIENT
  Age: 74 Year
  Sex: Female

DRUGS (16)
  1. SANDOSTATIN LAR DEPOT [Suspect]
     Active Substance: OCTREOTIDE ACETATE
     Dosage: 20 MG, QMO
     Route: 030
     Dates: start: 20121121
  2. RESOTRAN [Concomitant]
     Active Substance: PRUCALOPRIDE SUCCINATE
     Indication: PRODUCT USED FOR UNKNOWN INDICATION
     Route: 065
  3. CALCIUM CARBONATE. [Concomitant]
     Active Substance: CALCIUM CARBONATE
     Indication: PRODUCT USED FOR UNKNOWN INDICATION
     Dosage: UNK
     Route: 065
  4. PANTOPRAZOLE [Concomitant]
     Active Substance: PANTOPRAZOLE
     Indication: PRODUCT USED FOR UNKNOWN INDICATION
     Dosage: UNK
     Route: 065
  5. SANDOSTATIN LAR DEPOT [Suspect]
     Active Substance: OCTREOTIDE ACETATE
     Dosage: 20 MG, QMO
     Route: 030
     Dates: start: 20190307
  6. AMLODIPINE [Suspect]
     Active Substance: AMLODIPINE BESYLATE
     Indication: PRODUCT USED FOR UNKNOWN INDICATION
     Dosage: 10 MG, QD
     Route: 065
     Dates: start: 2018, end: 2018
  7. GABAPENTIN. [Concomitant]
     Active Substance: GABAPENTIN
     Indication: PRODUCT USED FOR UNKNOWN INDICATION
     Route: 065
  8. PREDNISONE. [Concomitant]
     Active Substance: PREDNISONE
     Indication: PRODUCT USED FOR UNKNOWN INDICATION
     Dosage: 35 MG, (TAPERING BY 5 MG/WEEK TO 0 MG)
  9. ESCITALOPRAM [Concomitant]
     Active Substance: ESCITALOPRAM OXALATE
     Indication: PRODUCT USED FOR UNKNOWN INDICATION
     Dosage: UNK
     Route: 065
  10. SANDOSTATIN [Suspect]
     Active Substance: OCTREOTIDE ACETATE
     Indication: NEUROENDOCRINE TUMOUR
     Dosage: UNK UNK, BID
     Route: 058
     Dates: start: 20110711, end: 20110724
  11. SANDOSTATIN LAR DEPOT [Suspect]
     Active Substance: OCTREOTIDE ACETATE
     Indication: NEUROENDOCRINE TUMOUR
     Dosage: 20 MG, QMO (ONCE A MONTH)
     Route: 030
     Dates: start: 20110726
  12. PERINDOPRIL [Concomitant]
     Active Substance: PERINDOPRIL
     Indication: PRODUCT USED FOR UNKNOWN INDICATION
     Dosage: 4 MG, QD
     Route: 065
  13. HYDROMORPHONE [Concomitant]
     Active Substance: HYDROMORPHONE
     Indication: PRODUCT USED FOR UNKNOWN INDICATION
     Dosage: UNK
     Route: 065
  14. VITAMIN D [Concomitant]
     Active Substance: VITAMIN D NOS
     Indication: PRODUCT USED FOR UNKNOWN INDICATION
     Dosage: UNK
     Route: 065
  15. SANDOSTATIN LAR DEPOT [Suspect]
     Active Substance: OCTREOTIDE ACETATE
     Dosage: 30 MG, QMO
     Route: 030
  16. OLANZAPINE. [Concomitant]
     Active Substance: OLANZAPINE
     Indication: PRODUCT USED FOR UNKNOWN INDICATION
     Route: 065

REACTIONS (55)
  - Wrist fracture [Unknown]
  - Rib fracture [Unknown]
  - Head injury [Not Recovered/Not Resolved]
  - Wound [Unknown]
  - Nasopharyngitis [Unknown]
  - Anger [Unknown]
  - Anxiety [Unknown]
  - Headache [Not Recovered/Not Resolved]
  - Suicide attempt [Unknown]
  - Pneumonia [Unknown]
  - Depressed mood [Recovering/Resolving]
  - Tremor [Recovered/Resolved]
  - Muscular weakness [Unknown]
  - Screaming [Unknown]
  - Feeling abnormal [Unknown]
  - Cerebrovascular accident [Unknown]
  - Suicidal ideation [Unknown]
  - Nervousness [Unknown]
  - Mental disorder [Unknown]
  - Rash [Unknown]
  - Inappropriate schedule of product administration [Unknown]
  - Peripheral swelling [Unknown]
  - Diarrhoea [Unknown]
  - Arthropod bite [Unknown]
  - Hypertension [Recovered/Resolved]
  - Unresponsive to stimuli [Unknown]
  - Vasculitis [Unknown]
  - Crying [Recovered/Resolved]
  - Erythema [Unknown]
  - Nausea [Unknown]
  - Bronchitis [Recovered/Resolved]
  - Productive cough [Recovered/Resolved]
  - Feeling jittery [Unknown]
  - Pollakiuria [Recovered/Resolved]
  - Contusion [Unknown]
  - Hypovolaemia [Unknown]
  - Malaise [Unknown]
  - Abdominal discomfort [Recovering/Resolving]
  - Fatigue [Unknown]
  - Depression [Recovered/Resolved]
  - Nervousness [Unknown]
  - Depression [Unknown]
  - Pain in extremity [Unknown]
  - Malignant neoplasm progression [Unknown]
  - Psychiatric symptom [Unknown]
  - Hypoacusis [Unknown]
  - Fall [Recovered/Resolved]
  - Fall [Unknown]
  - Joint swelling [Unknown]
  - Nervousness [Recovered/Resolved]
  - Blood pressure increased [Unknown]
  - Cough [Unknown]
  - Gait disturbance [Unknown]
  - Emotional distress [Unknown]
  - Nausea [Recovered/Resolved]

NARRATIVE: CASE EVENT DATE: 20121214
